FAERS Safety Report 8499636-0 (Version None)
Quarter: 2012Q3

REPORT INFORMATION
  Report Type: 
  Country: None (occurrence: None)
  Receive Date: 20120710
  Receipt Date: 20120705
  Transmission Date: 20120928
  Serious: Yes (Death, Other)
  Sender: FDA-Public Use
  Company Number: US-ASTELLAS-2012US004585

PATIENT
  Sex: Male

DRUGS (2)
  1. FLUID [Concomitant]
     Indication: PRODUCT USED FOR UNKNOWN INDICATION
     Dosage: 1 L, TOTAL DOSE
     Route: 042
     Dates: start: 20120510, end: 20120510
  2. ERLOTINIB HYDROCHLORIDE [Suspect]
     Indication: LUNG CARCINOMA CELL TYPE UNSPECIFIED STAGE 0
     Dosage: 150 MG, UID/QD
     Route: 048
     Dates: start: 20120423

REACTIONS (9)
  - NON-SMALL CELL LUNG CANCER [None]
  - DIARRHOEA [None]
  - RESPIRATORY FAILURE [None]
  - RENAL FAILURE [None]
  - NAUSEA [None]
  - FALL [None]
  - GAIT DISTURBANCE [None]
  - CATARACT OPERATION [None]
  - RASH [None]
